FAERS Safety Report 5816305-3 (Version None)
Quarter: 2008Q3

REPORT INFORMATION
  Report Type: 
  Country: None (occurrence: None)
  Receive Date: 20080721
  Receipt Date: 20080714
  Transmission Date: 20090109
  Serious: Yes (Other)
  Sender: FDA-Public Use
  Company Number: US-BAYER-200818575NA

PATIENT
  Age: 8 Year
  Sex: Female
  Weight: 24 kg

DRUGS (2)
  1. CIPRO [Suspect]
     Indication: URINARY TRACT INFECTION
     Dosage: TOTAL DAILY DOSE: 24 ML
     Route: 048
     Dates: start: 20080310, end: 20080320
  2. AMOXICILLIN [Concomitant]
     Dates: start: 20080201

REACTIONS (4)
  - BACK PAIN [None]
  - KIDNEY INFECTION [None]
  - PAIN IN EXTREMITY [None]
  - SINUSITIS [None]
